FAERS Safety Report 19910043 (Version 2)
Quarter: 2021Q4

REPORT INFORMATION
  Report Type: Report from Study
  Country: US (occurrence: US)
  Receive Date: 20211003
  Receipt Date: 20211011
  Transmission Date: 20220303
  Serious: No
  Sender: FDA-Public Use
  Company Number: US-BOEHRINGERINGELHEIM-2021-BI-130320

PATIENT
  Age: 64 Year
  Sex: Female

DRUGS (3)
  1. OFEV [Suspect]
     Active Substance: NINTEDANIB
     Indication: Idiopathic pulmonary fibrosis
     Dosage: OFEV DOSE 300MG DAILY
     Route: 048
     Dates: start: 20210922
  2. OFEV [Suspect]
     Active Substance: NINTEDANIB
     Route: 048
  3. LOPERAMIDE [Suspect]
     Active Substance: LOPERAMIDE
     Indication: Product used for unknown indication
     Dates: start: 20210924

REACTIONS (5)
  - Constipation [Recovered/Resolved]
  - Constipation [Unknown]
  - Diarrhoea [Unknown]
  - Nausea [Unknown]
  - Faeces discoloured [Unknown]

NARRATIVE: CASE EVENT DATE: 20210924
